FAERS Safety Report 4998891-9 (Version None)
Quarter: 2006Q2

REPORT INFORMATION
  Report Type: 
  Country: None (occurrence: None)
  Receive Date: 20060510
  Receipt Date: 20051202
  Transmission Date: 20061013
  Serious: Yes (Hospitalization, Other)
  Sender: FDA-Public Use
  Company Number: US-MERCK-0512USA00509

PATIENT
  Age: 67 Year
  Sex: Female
  Weight: 100 kg

DRUGS (18)
  1. VIOXX [Suspect]
     Indication: OSTEOARTHRITIS
     Route: 048
     Dates: start: 20000330, end: 20040929
  2. DIGOXIN [Concomitant]
     Route: 065
  3. FOSAMAX [Concomitant]
     Route: 065
  4. TOPROL-XL [Concomitant]
     Route: 065
  5. VERAPAMIL MSD LP [Concomitant]
     Route: 065
  6. PREMARIN [Concomitant]
     Route: 065
  7. HYDROCHLOROTHIAZIDE AND TRIAMTERENE [Concomitant]
     Route: 065
  8. ZYRTEC [Concomitant]
     Route: 065
  9. ZOCOR [Concomitant]
     Route: 065
  10. ASPIRIN [Concomitant]
     Route: 065
  11. [THERAPY UNSPECIFIED] [Concomitant]
     Route: 065
  12. CALAN [Concomitant]
     Route: 065
  13. CITRUCEL [Concomitant]
     Route: 065
  14. CALTRATE [Concomitant]
     Route: 065
  15. DITROPAN XL [Concomitant]
     Route: 048
  16. PRINIVIL [Concomitant]
     Route: 048
  17. NITROGLYCERIN [Concomitant]
     Route: 060
  18. DYAZIDE [Concomitant]
     Route: 048

REACTIONS (4)
  - CEREBROVASCULAR ACCIDENT [None]
  - ISCHAEMIA [None]
  - MYOCARDIAL INFARCTION [None]
  - TRANSIENT ISCHAEMIC ATTACK [None]
